FAERS Safety Report 12928979 (Version 4)
Quarter: 2016Q4

REPORT INFORMATION
  Report Type: Report from Study
  Country: JP (occurrence: JP)
  Receive Date: 20161110
  Receipt Date: 20161215
  Transmission Date: 20170207
  Serious: Yes (Hospitalization)
  Sender: FDA-Public Use
  Company Number: PHJP2016JP031971

PATIENT
  Age: 47 Year
  Sex: Male
  Weight: 90.4 kg

DRUGS (2)
  1. ISONIAZID. [Suspect]
     Active Substance: ISONIAZID
     Indication: PRODUCT USED FOR UNKNOWN INDICATION
     Dosage: UNK
     Route: 065
     Dates: end: 20161108
  2. COSENTYX [Suspect]
     Active Substance: SECUKINUMAB
     Indication: PSORIASIS
     Dosage: 300 MG, QW
     Route: 058
     Dates: start: 20161024, end: 20161024

REACTIONS (10)
  - Inflammation [Unknown]
  - Peripheral swelling [Unknown]
  - Erythema [Unknown]
  - Hepatic function abnormal [Not Recovered/Not Resolved]
  - Cellulitis [Recovering/Resolving]
  - Chills [Unknown]
  - Pyrexia [Unknown]
  - C-reactive protein increased [Unknown]
  - Pain in extremity [Not Recovered/Not Resolved]
  - White blood cell count increased [Unknown]

NARRATIVE: CASE EVENT DATE: 20161024
